FAERS Safety Report 7421545-6 (Version None)
Quarter: 2011Q2

REPORT INFORMATION
  Report Type: 
  Country: None (occurrence: None)
  Receive Date: 20110418
  Receipt Date: 20110325
  Transmission Date: 20111010
  Serious: No
  Sender: FDA-Public Use
  Company Number: US-B.I. PHARMACEUTICALS,INC./RIDGEFIELD-2011-BP-09342BP

PATIENT
  Sex: Female

DRUGS (7)
  1. ZANTAC 75 [Suspect]
     Indication: GASTROOESOPHAGEAL REFLUX DISEASE
     Dosage: 75 MG
     Route: 048
     Dates: start: 20110323, end: 20110323
  2. STEROIDS [Suspect]
     Indication: ADRENAL DISORDER
  3. STEROIDS [Suspect]
     Indication: BLINDNESS
  4. STEROIDS [Suspect]
     Indication: MULTIPLE SCLEROSIS
  5. STEROIDS [Suspect]
     Indication: SYSTEMIC LUPUS ERYTHEMATOSUS
  6. STEROIDS [Suspect]
     Indication: DEMYELINATION
  7. STEROIDS [Suspect]
     Indication: ANGIOPATHY

REACTIONS (6)
  - THROAT TIGHTNESS [None]
  - DIZZINESS [None]
  - BLOOD PRESSURE INCREASED [None]
  - UNEVALUABLE EVENT [None]
  - FEELING ABNORMAL [None]
  - PAIN IN EXTREMITY [None]
